FAERS Safety Report 21465531 (Version 2)
Quarter: 2022Q4

REPORT INFORMATION
  Report Type: Report from Study
  Country: US (occurrence: US)
  Receive Date: 20221017
  Receipt Date: 20221110
  Transmission Date: 20230113
  Serious: Yes (Hospitalization)
  Sender: FDA-Public Use
  Company Number: US-BAUSCH-BL-2022-023594

PATIENT
  Age: 57 Year
  Sex: Male

DRUGS (1)
  1. XIFAXAN [Suspect]
     Active Substance: RIFAXIMIN
     Indication: Hepatic encephalopathy
     Route: 048

REACTIONS (4)
  - Varices oesophageal [Unknown]
  - Stress [Not Recovered/Not Resolved]
  - Alcohol use [Not Recovered/Not Resolved]
  - Intentional product use issue [Unknown]
